FAERS Safety Report 25342734 (Version 2)
Quarter: 2025Q3

REPORT INFORMATION
  Report Type: Spontaneous
  Country: MX (occurrence: MX)
  Receive Date: 20250521
  Receipt Date: 20250809
  Transmission Date: 20251020
  Serious: Yes (Other)
  Sender: ALEXION PHARMACEUTICALS
  Company Number: MX-ASTRAZENECA-202505GLO015806MX

PATIENT
  Age: 55 Year
  Sex: Female

DRUGS (3)
  1. DAPAGLIFLOZIN [Suspect]
     Active Substance: DAPAGLIFLOZIN
     Indication: Cholecystitis
     Route: 065
  2. METOPROLOL TARTRATE [Suspect]
     Active Substance: METOPROLOL TARTRATE
     Route: 065
  3. DIGOXIN [Suspect]
     Active Substance: DIGOXIN
     Route: 065

REACTIONS (3)
  - Cardiac failure [Recovered/Resolved]
  - Atrioventricular block complete [Recovered/Resolved]
  - Off label use [Unknown]
